FAERS Safety Report 4967601-3 (Version None)
Quarter: 2006Q2

REPORT INFORMATION
  Report Type: 
  Country: None (occurrence: None)
  Receive Date: 20060410
  Receipt Date: 20060321
  Transmission Date: 20061013
  Serious: Yes (Other)
  Sender: FDA-Public Use
  Company Number: US-KINGPHARMUSA00001-K200600368

PATIENT
  Sex: Female

DRUGS (1)
  1. EPIPEN JR. [Suspect]
     Dosage: .15 MG, SINGLE
     Dates: start: 20060131, end: 20060131

REACTIONS (9)
  - ACCIDENTAL EXPOSURE [None]
  - AMPUTATION [None]
  - GANGRENE [None]
  - INJECTION SITE DISCOLOURATION [None]
  - LOSS OF CONSCIOUSNESS [None]
  - PALPITATIONS [None]
  - PARAESTHESIA [None]
  - SKIN EXFOLIATION [None]
  - SOFT TISSUE DISORDER [None]
